FAERS Safety Report 10526246 (Version 1)
Quarter: 2014Q4

REPORT INFORMATION
  Report Type: Spontaneous
  Country: FR (occurrence: FR)
  Receive Date: 20141017
  Receipt Date: 20141017
  Transmission Date: 20150528
  Serious: Yes (Hospitalization)
  Sender: FDA-Public Use
  Company Number: FR-SA-2014SA138282

PATIENT
  Age: 89 Year
  Sex: Female

DRUGS (14)
  1. PLAVIX [Suspect]
     Active Substance: CLOPIDOGREL BISULFATE
     Indication: PROPHYLAXIS
     Route: 048
     Dates: start: 201403, end: 20140605
  2. KARDEGIC [Suspect]
     Active Substance: ASPIRIN LYSINE
     Indication: PROPHYLAXIS
     Dosage: STRENGTH: 75 MG POWDER FOR ORAL SOLUTION
     Route: 048
     Dates: start: 201403, end: 20140605
  3. STILNOX [Concomitant]
     Active Substance: ZOLPIDEM TARTRATE
  4. PREVISCAN [Suspect]
     Active Substance: FLUINDIONE
     Indication: PROPHYLAXIS
     Dosage: STRENGTH: 20 MG?DOSE:10-15MG
     Route: 048
     Dates: end: 20140605
  5. TAHOR [Concomitant]
     Active Substance: ATORVASTATIN CALCIUM
  6. INEXIUM [Concomitant]
     Active Substance: ESOMEPRAZOLE
  7. DOLIPRANE [Concomitant]
     Active Substance: ACETAMINOPHEN
  8. COVERSYL [Concomitant]
     Active Substance: PERINDOPRIL
  9. LEVOTHYROX [Concomitant]
     Active Substance: LEVOTHYROXINE
  10. DIFFU K [Concomitant]
     Active Substance: POTASSIUM CHLORIDE
  11. LASILIX SPECIAL [Concomitant]
     Active Substance: FUROSEMIDE
  12. KREDEX [Concomitant]
     Active Substance: CARVEDILOL
  13. DUPHALAC [Concomitant]
     Active Substance: LACTULOSE
  14. AUGMENTIN [Concomitant]
     Active Substance: AMOXICILLIN\CLAVULANATE POTASSIUM

REACTIONS (4)
  - Anaemia [Recovered/Resolved]
  - Epistaxis [Recovered/Resolved]
  - International normalised ratio increased [Recovered/Resolved]
  - Subdural haematoma [Recovered/Resolved]

NARRATIVE: CASE EVENT DATE: 20140605
